FAERS Safety Report 14675564 (Version 7)
Quarter: 2018Q3

REPORT INFORMATION
  Report Type: Report from Study
  Country: None (occurrence: TR)
  Receive Date: 20180323
  Receipt Date: 20180710
  Transmission Date: 20181010
  Serious: Yes (Hospitalization)
  Sender: FDA-Public Use
  Company Number: TR-ABBVIE-18K-161-2295104-00

PATIENT
  Age: 73 Year
  Sex: Female
  Weight: 45 kg

DRUGS (21)
  1. LYRICA [Concomitant]
     Active Substance: PREGABALIN
     Route: 048
     Dates: start: 20180319
  2. LYRICA [Concomitant]
     Active Substance: PREGABALIN
     Route: 048
     Dates: start: 20180319
  3. STALEVO [Concomitant]
     Active Substance: CARBIDOPA\ENTACAPONE\LEVODOPA
     Indication: PARKINSON^S DISEASE
     Route: 048
     Dates: start: 20180330
  4. PANTOPRAZOL [Concomitant]
     Active Substance: PANTOPRAZOLE SODIUM
     Indication: PROPHYLAXIS
     Route: 048
  5. DUODOPA [Suspect]
     Active Substance: CARBIDOPA\LEVODOPA
     Dosage: MORNING: 3.6 ML?CONTINUOUS: 2.0  ML?EXTRA: 1.0 ML
     Route: 050
     Dates: start: 201803, end: 20180330
  6. PEXA XR [Concomitant]
     Indication: PARKINSON^S DISEASE
     Route: 048
     Dates: end: 20180321
  7. STALEVO [Concomitant]
     Active Substance: CARBIDOPA\ENTACAPONE\LEVODOPA
     Route: 048
     Dates: start: 20180330
  8. DUODOPA [Suspect]
     Active Substance: CARBIDOPA\LEVODOPA
     Dosage: MORNING : 3.6 ML?CONTINUOUS: 1.8 ML?EXTRA: 1.0 ML
     Route: 050
     Dates: start: 20180330
  9. DUODOPA [Suspect]
     Active Substance: CARBIDOPA\LEVODOPA
     Dosage: MORNING: 3.6 ML?CONTINUOUS: 1.9 ML?EXTRA: 1.0 ML
     Route: 050
     Dates: start: 20180420, end: 20180619
  10. LYRICA [Concomitant]
     Active Substance: PREGABALIN
     Indication: PARKINSON^S DISEASE
     Route: 048
     Dates: end: 20180319
  11. MEDAZEPAM [Concomitant]
     Active Substance: MEDAZEPAM
     Indication: PRODUCT USED FOR UNKNOWN INDICATION
     Route: 048
     Dates: start: 20180622
  12. DUODOPA [Suspect]
     Active Substance: CARBIDOPA\LEVODOPA
     Dosage: MORNING: 4.2 ML?CONTINUOUS: 1.6 ML?EXTRA: 1.0 ML
     Route: 050
     Dates: start: 201803, end: 201803
  13. DUODOPA [Suspect]
     Active Substance: CARBIDOPA\LEVODOPA
     Dosage: MORNING : 3.6 ML?CONTINOUS: 2.7 ML?EXTRA: 1.0 ML
     Route: 050
     Dates: start: 20180619
  14. COGITO [Concomitant]
     Indication: PARKINSON^S DISEASE
     Route: 048
     Dates: start: 20180330
  15. DUODOPA [Suspect]
     Active Substance: CARBIDOPA\LEVODOPA
     Indication: PARKINSON^S DISEASE
     Dosage: MORNING DOSE(ML):4.20?CONTINUOUS DOSE(ML):2.30?EXTRA DOSE(ML):1.00
     Route: 050
     Dates: start: 20170511
  16. DUODOPA [Suspect]
     Active Substance: CARBIDOPA\LEVODOPA
     Dosage: MORNING: 4.2 ML?CONTINUOUS: 1.4 ML?EXTRA: 1.0 ML
     Route: 050
     Dates: end: 201803
  17. DOPALEVO [Concomitant]
     Indication: PARKINSON^S DISEASE
     Route: 048
     Dates: start: 20180622
  18. DUODOPA [Suspect]
     Active Substance: CARBIDOPA\LEVODOPA
     Dosage: MORNING: 3.6 ML?CONTINUOUS: 1.8 ML?EXTRA: 1.0 ML
     Route: 050
     Dates: end: 20180420
  19. PK MERZ [Concomitant]
     Active Substance: AMANTADINE SULFATE
     Indication: PARKINSON^S DISEASE
     Route: 048
  20. PARAFON [Concomitant]
     Active Substance: ACETAMINOPHEN\CHLORZOXAZONE
     Indication: PRODUCT USED FOR UNKNOWN INDICATION
     Route: 048
     Dates: start: 20180618
  21. MEDAZEPAM [Concomitant]
     Active Substance: MEDAZEPAM
     Indication: PRODUCT USED FOR UNKNOWN INDICATION

REACTIONS (13)
  - Hypokinesia [Not Recovered/Not Resolved]
  - Dyskinesia [Recovered/Resolved]
  - Upper limb fracture [Recovering/Resolving]
  - Dyskinesia [Recovered/Resolved]
  - Bradykinesia [Recovering/Resolving]
  - Cholelithiasis [Not Recovered/Not Resolved]
  - Dyskinesia [Not Recovered/Not Resolved]
  - Fall [Recovered/Resolved]
  - Asthenia [Not Recovered/Not Resolved]
  - Decreased appetite [Recovered/Resolved]
  - Bradykinesia [Recovered/Resolved]
  - Bradykinesia [Recovered/Resolved]
  - Device dislocation [Unknown]

NARRATIVE: CASE EVENT DATE: 201802
